FAERS Safety Report 6424033-9 (Version None)
Quarter: 2009Q4

REPORT INFORMATION
  Report Type: 
  Country: None (occurrence: None)
  Receive Date: 20091030
  Receipt Date: 20091030
  Transmission Date: 20100525
  Serious: Yes (Other)
  Sender: FDA-Public Use
  Company Number: None

PATIENT
  Age: 26 Year
  Sex: Male
  Weight: 63.5036 kg

DRUGS (1)
  1. METOCLOPRAMIDE HCL [Suspect]
     Indication: IMPAIRED GASTRIC EMPTYING
     Dosage: 10MG 3-4 TIMES A DAY PO
     Route: 048
     Dates: start: 20090701, end: 20090905

REACTIONS (4)
  - ANXIETY [None]
  - DEPRESSION [None]
  - INITIAL INSOMNIA [None]
  - SUICIDAL IDEATION [None]
